FAERS Safety Report 6101128-0 (Version None)
Quarter: 2009Q1

REPORT INFORMATION
  Report Type: 
  Country: None (occurrence: None)
  Receive Date: 20090304
  Receipt Date: 20090224
  Transmission Date: 20090719
  Serious: Yes (Hospitalization)
  Sender: FDA-Public Use
  Company Number: FR-ABBOTT-09P-056-0558907-00

PATIENT
  Sex: Male

DRUGS (1)
  1. MONOZECLAR [Suspect]
     Indication: BRONCHOPNEUMONIA

REACTIONS (2)
  - CANDIDIASIS [None]
  - HICCUPS [None]
